FAERS Safety Report 4423912-1 (Version None)
Quarter: 2004Q3

REPORT INFORMATION
  Report Type: 
  Country: None (occurrence: None)
  Receive Date: 20040806
  Receipt Date: 20040716
  Transmission Date: 20050211
  Serious: Yes (Hospitalization)
  Sender: FDA-Public Use
  Company Number: EWC040438734

PATIENT
  Age: 46 Year
  Sex: Female
  Weight: 61 kg

DRUGS (5)
  1. OLANZAPINE [Suspect]
     Indication: SCHIZOPHRENIA, PARANOID TYPE
     Dosage: 20 MG DAY
     Dates: start: 20040311, end: 20040322
  2. MELLERIL(THIORIDAZINE HYDROCHLORIDE) [Concomitant]
  3. LORAZEPAM [Concomitant]
  4. FLURAZEPAM [Concomitant]
  5. BIPERIDEN HYDROCHLORIDE TAB [Concomitant]

REACTIONS (2)
  - AGRANULOCYTOSIS [None]
  - BONE MARROW DEPRESSION [None]
